FAERS Safety Report 24239547 (Version 1)
Quarter: 2024Q3

REPORT INFORMATION
  Report Type: Spontaneous
  Country: US (occurrence: US)
  Receive Date: 20240822
  Receipt Date: 20240822
  Transmission Date: 20241017
  Serious: No
  Sender: AVADEL CNS PHARMA
  Company Number: US-AVADEL CNS PHARMACEUTICALS, LLC-2024AVA00918

PATIENT
  Age: 34 Year
  Sex: Male

DRUGS (8)
  1. LUMRYZ [Suspect]
     Active Substance: SODIUM OXYBATE
     Indication: Narcolepsy
     Dosage: 4.5 G, ONCE NIGHTLY
     Route: 048
     Dates: start: 20240524, end: 20240529
  2. LUMRYZ [Suspect]
     Active Substance: SODIUM OXYBATE
     Indication: Narcolepsy
     Dosage: 6 G, ONCE NIGHTLY
     Route: 048
     Dates: start: 20240530, end: 2024
  3. LUMRYZ [Suspect]
     Active Substance: SODIUM OXYBATE
     Dosage: 6 G, ONCE NIGHTLY
     Route: 048
     Dates: start: 202406
  4. WELLBUTRIN [Suspect]
     Active Substance: BUPROPION HYDROCHLORIDE
     Dosage: 150 MG, XR
     Dates: end: 2024
  5. GINGER [Concomitant]
     Active Substance: GINGER
  6. MODAFINIL [Concomitant]
     Active Substance: MODAFINIL
     Dosage: 100 MG, ONCE DAILY
  7. UNSPECIFIED INGREDIENT [Suspect]
     Active Substance: UNSPECIFIED INGREDIENT
  8. ENTYVIO [Concomitant]
     Active Substance: VEDOLIZUMAB

REACTIONS (9)
  - Dry eye [Recovering/Resolving]
  - Feeling abnormal [Recovered/Resolved]
  - Mania [Recovered/Resolved]
  - Psychomotor hyperactivity [Recovered/Resolved]
  - Nausea [Recovered/Resolved]
  - Hyperhidrosis [Not Recovered/Not Resolved]
  - Anxiety [Recovered/Resolved]
  - Confusional state [Recovered/Resolved]
  - Depressed mood [Recovered/Resolved]

NARRATIVE: CASE EVENT DATE: 20240530
